FAERS Safety Report 8059658-0 (Version None)
Quarter: 2012Q1

REPORT INFORMATION
  Report Type: 
  Country: None (occurrence: None)
  Receive Date: 20120120
  Receipt Date: 20120112
  Transmission Date: 20120608
  Serious: Yes (Hospitalization, Other)
  Sender: FDA-Public Use
  Company Number: PHHY2012TW003273

PATIENT
  Sex: Male
  Weight: 79.5 kg

DRUGS (1)
  1. AMLODIPINE [Suspect]
     Indication: HYPERTENSION
     Dosage: 5 MG OF AMLODIPIN, 80 MG OF VALSARTAN
     Route: 048
     Dates: start: 20111025

REACTIONS (5)
  - FALL [None]
  - CONTUSION [None]
  - RIB FRACTURE [None]
  - DYSPNOEA [None]
  - CHEST PAIN [None]
